FAERS Safety Report 16965197 (Version 1)
Quarter: 2019Q4

REPORT INFORMATION
  Report Type: Spontaneous
  Country: US (occurrence: US)
  Receive Date: 20190909
  Receipt Date: 20190909
  Transmission Date: 20200122
  Serious: No
  Sender: FDA-Public Use
  Company Number: None

PATIENT
  Age: 33 Year
  Sex: Female

DRUGS (1)
  1. BOTOX [Suspect]
     Active Substance: ONABOTULINUMTOXINA
     Indication: MIGRAINE
     Dosage: IU^S INTHERNATIONAL UNITS
     Route: 058
     Dates: start: 201807

REACTIONS (2)
  - Off label use [None]
  - Incorrect route of product administration [None]

NARRATIVE: CASE EVENT DATE: 20190909
